FAERS Safety Report 7493489-5 (Version None)
Quarter: 2011Q2

REPORT INFORMATION
  Report Type: 
  Country: None (occurrence: None)
  Receive Date: 20110520
  Receipt Date: 20110511
  Transmission Date: 20111010
  Serious: Yes (Other)
  Sender: FDA-Public Use
  Company Number: SE-ASTRAZENECA-2011SE28384

PATIENT
  Age: 66 Year

DRUGS (4)
  1. SEROQUEL [Suspect]
     Dosage: LOW DOSE
     Route: 048
     Dates: start: 20100101, end: 20100101
  2. VALPROATE SODIUM [Concomitant]
  3. LITHIONIT [Suspect]
     Route: 048
     Dates: start: 20100101
  4. METOTREXAT [Concomitant]

REACTIONS (2)
  - NEUROPATHY PERIPHERAL [None]
  - COGNITIVE DISORDER [None]
